FAERS Safety Report 18329779 (Version 1)
Quarter: 2020Q3

REPORT INFORMATION
  Report Type: Other
  Country: AR (occurrence: AR)
  Receive Date: 20200930
  Receipt Date: 20200930
  Transmission Date: 20201103
  Serious: Yes (Hospitalization)
  Sender: FDA-Public Use
  Company Number: AR-ROCHE-1658472

PATIENT
  Age: 54 Year
  Sex: Female

DRUGS (6)
  1. XOLAIR [Suspect]
     Active Substance: OMALIZUMAB
     Route: 065
     Dates: start: 20190610, end: 20200221
  2. XOLAIR [Suspect]
     Active Substance: OMALIZUMAB
     Dosage: 300 MG, MONTHLY
     Route: 065
     Dates: start: 201606
  3. XOLAIR [Suspect]
     Active Substance: OMALIZUMAB
     Route: 065
     Dates: start: 20121023, end: 20200221
  4. XOLAIR [Suspect]
     Active Substance: OMALIZUMAB
     Route: 065
     Dates: start: 201602
  5. XOLAIR [Suspect]
     Active Substance: OMALIZUMAB
     Indication: ASTHMA
     Dosage: 2 DF (150 MG), MONTHLY
     Route: 065
     Dates: start: 201207, end: 201503
  6. XOLAIR [Suspect]
     Active Substance: OMALIZUMAB
     Dosage: 2 DF (150 MG), MONTHLY
     Route: 065
     Dates: start: 201504, end: 201604

REACTIONS (7)
  - Respiratory arrest [Recovering/Resolving]
  - Asthmatic crisis [Not Recovered/Not Resolved]
  - Osteoarthritis [Not Recovered/Not Resolved]
  - Thyroid disorder [Unknown]
  - Respiratory disorder [Unknown]
  - Cardiac failure [Not Recovered/Not Resolved]
  - Pneumonia [Recovered/Resolved]

NARRATIVE: CASE EVENT DATE: 201503
